FAERS Safety Report 6010231-5 (Version None)
Quarter: 2008Q4

REPORT INFORMATION
  Report Type: 
  Country: None (occurrence: None)
  Receive Date: 20081218
  Receipt Date: 20081111
  Transmission Date: 20090506
  Serious: No
  Sender: FDA-Public Use
  Company Number: A0705479A

PATIENT
  Age: 40 Year
  Sex: Female

DRUGS (2)
  1. FLONASE [Suspect]
     Route: 045
     Dates: start: 20010101
  2. CELEXA [Concomitant]

REACTIONS (6)
  - ARTHROPOD STING [None]
  - DRUG INEFFECTIVE [None]
  - FEELING ABNORMAL [None]
  - LACRIMATION INCREASED [None]
  - PRODUCT QUALITY ISSUE [None]
  - SENSORY DISTURBANCE [None]
